FAERS Safety Report 8464241-9 (Version None)
Quarter: 2012Q2

REPORT INFORMATION
  Report Type: 
  Country: None (occurrence: None)
  Receive Date: 20120625
  Receipt Date: 20120618
  Transmission Date: 20120825
  Serious: No
  Sender: FDA-Public Use
  Company Number: US-PFIZER INC-2012142753

PATIENT
  Sex: Male

DRUGS (7)
  1. LISINOPRIL [Concomitant]
     Indication: HYPERTENSION
     Dosage: 20 MG, DAILY
  2. VIAGRA [Suspect]
     Indication: ERECTILE DYSFUNCTION
     Dosage: 150 MG, AS NEEDED
     Route: 048
     Dates: start: 20120501
  3. DILTIAZEM [Concomitant]
     Indication: HYPERTENSION
     Dosage: 120 MG, DAILY
  4. VIAGRA [Suspect]
     Dosage: 50 MG, UNK
     Route: 048
  5. VIAGRA [Suspect]
     Dosage: 1/2 OF 50 MG TO GET 25 MG
     Route: 048
  6. GEMFIBROZIL [Concomitant]
     Indication: HYPERLIPIDAEMIA
     Dosage: 100 MG, 2X/DAY
  7. ATENOLOL [Concomitant]
     Indication: HYPERTENSION
     Dosage: 50 MG, DAILY

REACTIONS (1)
  - DRUG INEFFECTIVE [None]
